FAERS Safety Report 6064288-6 (Version None)
Quarter: 2009Q1

REPORT INFORMATION
  Report Type: 
  Country: None (occurrence: None)
  Receive Date: 20090204
  Receipt Date: 20090122
  Transmission Date: 20090719
  Serious: Yes (Other)
  Sender: FDA-Public Use
  Company Number: JP-ASTRAZENECA-2009SE00621

PATIENT
  Age: 74 Year
  Sex: Female
  Weight: 63 kg

DRUGS (6)
  1. AMIAS [Suspect]
     Route: 065
     Dates: start: 20071026, end: 20090116
  2. AMIAS [Suspect]
     Route: 065
     Dates: start: 20090116
  3. BISOPROLOL [Concomitant]
     Indication: BLOOD PRESSURE INCREASED
     Route: 065
     Dates: start: 20081001
  4. ASPIRIN [Concomitant]
     Indication: BLOOD PRESSURE INCREASED
     Route: 065
     Dates: start: 20030101
  5. LEVOTHYROXINE [Concomitant]
     Route: 065
     Dates: start: 20030501
  6. ROSUVASTATIN [Concomitant]
     Indication: BLOOD PRESSURE INCREASED
     Route: 065
     Dates: start: 20040901

REACTIONS (1)
  - GOUT [None]
